FAERS Safety Report 24857721 (Version 1)
Quarter: 2025Q1

REPORT INFORMATION
  Report Type: Other
  Country: BG (occurrence: BG)
  Receive Date: 20250117
  Receipt Date: 20250117
  Transmission Date: 20250409
  Serious: Yes (Death, Hospitalization)
  Sender: EMD SERONO INC
  Company Number: BG-Merck Healthcare KGaA-2025001139

PATIENT
  Age: 67 Year
  Sex: Male

DRUGS (3)
  1. TEPOTINIB [Suspect]
     Active Substance: TEPOTINIB
     Indication: Lung cancer metastatic
  2. CARBOPLATIN [Suspect]
     Active Substance: CARBOPLATIN
     Indication: Lung cancer metastatic
  3. ETOPOSIDE [Concomitant]
     Active Substance: ETOPOSIDE
     Indication: Lung cancer metastatic

REACTIONS (4)
  - Cardiac failure [Fatal]
  - Respiratory failure [Fatal]
  - Hepatic failure [Fatal]
  - General physical health deterioration [Unknown]
